FAERS Safety Report 16864858 (Version 3)
Quarter: 2019Q4

REPORT INFORMATION
  Report Type: Report from Study
  Country: US (occurrence: US)
  Receive Date: 20190929
  Receipt Date: 20191224
  Transmission Date: 20200122
  Serious: Yes (Hospitalization, Other)
  Sender: FDA-Public Use
  Company Number: PHHY2019US224229

PATIENT
  Age: 41 Year
  Sex: Female
  Weight: 51 kg

DRUGS (1)
  1. GILENYA [Suspect]
     Active Substance: FINGOLIMOD HYDROCHLORIDE
     Indication: MULTIPLE SCLEROSIS
     Dosage: 0.5 MG, QD
     Route: 048
     Dates: start: 20160523

REACTIONS (14)
  - Melanocytic naevus [Unknown]
  - Blood cholesterol increased [Unknown]
  - Headache [Recovering/Resolving]
  - Supraventricular tachycardia [Recovering/Resolving]
  - Lymphocyte count decreased [Unknown]
  - Low density lipoprotein increased [Unknown]
  - White blood cell count decreased [Unknown]
  - Anxiety [Unknown]
  - Eczema asteatotic [Unknown]
  - Chest discomfort [Recovered/Resolved]
  - Hypertension [Recovered/Resolved]
  - High density lipoprotein increased [Unknown]
  - Influenza [Recovered/Resolved]
  - Mobility decreased [Unknown]

NARRATIVE: CASE EVENT DATE: 20161007
